FAERS Safety Report 4606035-8 (Version None)
Quarter: 2005Q1

REPORT INFORMATION
  Report Type: 
  Country: None (occurrence: None)
  Receive Date: 20050311
  Receipt Date: 20050114
  Transmission Date: 20050727
  Serious: Yes (Hospitalization)
  Sender: FDA-Public Use
  Company Number: PHHO2005CA01059

PATIENT
  Age: 40 Year
  Sex: Male
  Weight: 188 kg

DRUGS (8)
  1. CLOZARIL [Suspect]
     Indication: HYPOMANIA
     Dosage: 25 MG HS TO 225 MG DAILY
     Route: 048
     Dates: start: 20041105, end: 20041213
  2. CARBAMAZEPINE [Concomitant]
     Dates: end: 20041031
  3. DIVALPROEX SODIUM [Concomitant]
     Dates: end: 20041213
  4. OLANZAPINE [Concomitant]
     Dates: end: 20041123
  5. PROPRANOLOL [Concomitant]
  6. FELODIPINE [Concomitant]
  7. RAMIPRIL [Concomitant]
  8. HYDROCHLOROTHIAZIDE [Concomitant]

REACTIONS (12)
  - ACUTE PRERENAL FAILURE [None]
  - AMYLOIDOSIS [None]
  - ASPARTATE AMINOTRANSFERASE INCREASED [None]
  - BLOOD ALKALINE PHOSPHATASE INCREASED [None]
  - BLOOD CREATININE INCREASED [None]
  - DIARRHOEA [None]
  - HYPOVOLAEMIA [None]
  - JAUNDICE CHOLESTATIC [None]
  - KIDNEY ENLARGEMENT [None]
  - LOWER RESPIRATORY TRACT INFECTION [None]
  - STEATORRHOEA [None]
  - VOMITING [None]
